FAERS Safety Report 21968614 (Version 1)
Quarter: 2023Q1

REPORT INFORMATION
  Report Type: Spontaneous
  Country: CN (occurrence: CN)
  Receive Date: 20230208
  Receipt Date: 20230208
  Transmission Date: 20230417
  Serious: Yes (Other)
  Sender: FDA-Public Use
  Company Number: CN-009507513-2302CHN001445

PATIENT
  Age: 47 Year
  Sex: Female
  Weight: 42 kg

DRUGS (2)
  1. CILASTATIN SODIUM\IMIPENEM [Suspect]
     Active Substance: CILASTATIN SODIUM\IMIPENEM
     Indication: Candida infection
     Dosage: 2 GRAMS TID IV DRIP
     Route: 041
     Dates: start: 202212, end: 20230116
  2. AMPHOTERICIN B [Suspect]
     Active Substance: AMPHOTERICIN B
     Dosage: 30 MILLIGRAM, QD
     Route: 041
     Dates: start: 20221221, end: 20230119

REACTIONS (7)
  - Intestinal obstruction [Unknown]
  - Haemolytic anaemia [Recovering/Resolving]
  - Procalcitonin increased [Recovering/Resolving]
  - Gamma-glutamyltransferase increased [Unknown]
  - Blood alkaline phosphatase increased [Unknown]
  - Product use in unapproved indication [Unknown]
  - Overdose [Unknown]

NARRATIVE: CASE EVENT DATE: 20221201
